FAERS Safety Report 10063169 (Version 1)
Quarter: 2014Q1

REPORT INFORMATION
  Report Type: Spontaneous
  Country: US (occurrence: None)
  Receive Date: 20140321
  Receipt Date: 20140321
  Transmission Date: 20141002
  Serious: Yes (Life-Threatening, Hospitalization)
  Sender: FDA-Public Use
  Company Number: MAC-13-038

PATIENT
  Sex: Female

DRUGS (1)
  1. MY WAY [Suspect]
     Dates: start: 20131103

REACTIONS (4)
  - Ectopic pregnancy [None]
  - Abdominal pain lower [None]
  - Constipation [None]
  - Haemorrhage [None]
